FAERS Safety Report 10562705 (Version 1)
Quarter: 2014Q4

REPORT INFORMATION
  Report Type: Report from Study
  Country: US (occurrence: US)
  Receive Date: 20141104
  Receipt Date: 20141104
  Transmission Date: 20150529
  Serious: Yes (Other)
  Sender: FDA-Public Use
  Company Number: US-PFIZER INC-2014298581

PATIENT
  Age: 61 Year
  Sex: Male
  Weight: 129.6 kg

DRUGS (16)
  1. AMPHOTERICINE B, LIPOSOME [Suspect]
     Active Substance: AMPHOTERICIN B
     Indication: MENINGITIS FUNGAL
     Dosage: UNK
     Route: 042
     Dates: start: 20121114
  2. CALCIUM CARBONATE. [Concomitant]
     Active Substance: CALCIUM CARBONATE
  3. FLEXERIL [Concomitant]
     Active Substance: CYCLOBENZAPRINE HYDROCHLORIDE
  4. PRAZOSIN [Concomitant]
     Active Substance: PRAZOSIN
  5. SENNA [Concomitant]
     Active Substance: SENNA LEAF\SENNOSIDES\SENNOSIDES A AND B
  6. EFFEXOR [Concomitant]
     Active Substance: VENLAFAXINE HYDROCHLORIDE
  7. NORVASC [Concomitant]
     Active Substance: AMLODIPINE BESYLATE
  8. LASIX [Concomitant]
     Active Substance: FUROSEMIDE
  9. GABAPENTIN. [Concomitant]
     Active Substance: GABAPENTIN
  10. HEPARIN [Concomitant]
     Active Substance: HEPARIN SODIUM
  11. DILAUDID [Concomitant]
     Active Substance: HYDROMORPHONE HYDROCHLORIDE
  12. COLACE [Concomitant]
     Active Substance: DOCUSATE SODIUM
  13. ALPRAZOLAM. [Concomitant]
     Active Substance: ALPRAZOLAM
  14. VORICONAZOLE. [Suspect]
     Active Substance: VORICONAZOLE
     Indication: MENINGITIS FUNGAL
     Dosage: 1200 MG, UNK
     Route: 042
     Dates: start: 20121114
  15. ALLOPURINOL. [Concomitant]
     Active Substance: ALLOPURINOL
  16. MIRALAX [Concomitant]
     Active Substance: POLYETHYLENE GLYCOL 3350

REACTIONS (6)
  - Hallucination, visual [Unknown]
  - Rash [Unknown]
  - Acute kidney injury [Unknown]
  - Thinking abnormal [Unknown]
  - Liver function test abnormal [Unknown]
  - Photophobia [Unknown]

NARRATIVE: CASE EVENT DATE: 20121114
